FAERS Safety Report 14304183 (Version 1)
Quarter: 2017Q4

REPORT INFORMATION
  Report Type: Spontaneous
  Country: US (occurrence: US)
  Receive Date: 20171219
  Receipt Date: 20171219
  Transmission Date: 20180321
  Serious: Yes (Hospitalization)
  Sender: FDA-Public Use
  Company Number: US-OTSUKA-DJ20081382

PATIENT
  Sex: Male
  Weight: 106 kg

DRUGS (6)
  1. ABILIFY [Suspect]
     Active Substance: ARIPIPRAZOLE
     Route: 065
     Dates: start: 2008
  2. TENEX [Concomitant]
     Active Substance: GUANFACINE HYDROCHLORIDE
     Indication: PRODUCT USED FOR UNKNOWN INDICATION
     Dosage: UNK
     Route: 065
  3. ABILIFY [Suspect]
     Active Substance: ARIPIPRAZOLE
     Route: 065
     Dates: start: 2007, end: 2007
  4. ADDERALL [Concomitant]
     Active Substance: AMPHETAMINE ASPARTATE\AMPHETAMINE SULFATE\DEXTROAMPHETAMINE SACCHARATE\DEXTROAMPHETAMINE SULFATE
     Indication: PRODUCT USED FOR UNKNOWN INDICATION
     Dosage: UNK
     Route: 065
  5. ABILIFY [Suspect]
     Active Substance: ARIPIPRAZOLE
     Indication: AUTISM SPECTRUM DISORDER
     Dosage: 20 MG, UNK
     Route: 065
     Dates: start: 2006, end: 2007
  6. ABILIFY [Suspect]
     Active Substance: ARIPIPRAZOLE
     Route: 065
     Dates: start: 200709, end: 200711

REACTIONS (10)
  - Myocarditis [Unknown]
  - Heart rate increased [Unknown]
  - Abnormal behaviour [Unknown]
  - Fatigue [Unknown]
  - Chest pain [Unknown]
  - Effusion [Unknown]
  - Drug level increased [Unknown]
  - Tic [Recovered/Resolved]
  - Arachnoid cyst [Unknown]
  - Anger [Unknown]

NARRATIVE: CASE EVENT DATE: 2006
